FAERS Safety Report 9300353 (Version 3)
Quarter: 2013Q4

REPORT INFORMATION
  Report Type: Spontaneous
  Country: US (occurrence: None)
  Receive Date: 20130107
  Receipt Date: 20131226
  Transmission Date: 20140711
  Serious: Yes (Hospitalization)
  Sender: FDA-Public Use
  Company Number: PHEH2012US017313

PATIENT
  Age: 42 Year
  Sex: Female

DRUGS (6)
  1. GILENYA [Suspect]
     Indication: MULTIPLE SCLEROSIS
     Route: 048
     Dates: start: 20120830
  2. CATAPRES [Concomitant]
  3. LISINOPRIL (LISINOPRIL) [Concomitant]
  4. ACE INHIBITOR NOS [Concomitant]
  5. HCT (HYDROCHLOROTHIAZIDE) [Concomitant]
  6. CALCIUM CHANNEL BLOCKERS [Concomitant]

REACTIONS (1)
  - Blood pressure increased [None]
